FAERS Safety Report 4995771-X (Version None)
Quarter: 2006Q2

REPORT INFORMATION
  Report Type: 
  Country: None (occurrence: None)
  Receive Date: 20060504
  Receipt Date: 20060421
  Transmission Date: 20061013
  Serious: Yes (Hospitalization)
  Sender: FDA-Public Use
  Company Number: 2006-01096

PATIENT
  Age: 74 Year
  Sex: Female
  Weight: 79.8 kg

DRUGS (7)
  1. FERRLECIT [Suspect]
     Indication: IRON DEFICIENCY ANAEMIA
     Dosage: SEE IMAGE
     Route: 042
     Dates: start: 20060313, end: 20060313
  2. FERRLECIT [Suspect]
     Indication: IRON DEFICIENCY ANAEMIA
     Dosage: SEE IMAGE
     Route: 042
     Dates: start: 20060313, end: 20060313
  3. PERCOCET [Concomitant]
  4. NIFEDIPINE [Concomitant]
  5. WELLBUTRIN [Concomitant]
  6. XANAX [Concomitant]
  7. DIOVAN [Concomitant]

REACTIONS (7)
  - ASTHENIA [None]
  - CHEST DISCOMFORT [None]
  - CHEST PAIN [None]
  - FALL [None]
  - FATIGUE [None]
  - PAIN [None]
  - PNEUMONIA [None]
